FAERS Safety Report 20624924 (Version 1)
Quarter: 2022Q1

REPORT INFORMATION
  Report Type: Spontaneous
  Country: FR (occurrence: FR)
  Receive Date: 20220323
  Receipt Date: 20220323
  Transmission Date: 20220423
  Serious: Yes (Hospitalization)
  Sender: FDA-Public Use
  Company Number: None

PATIENT
  Age: 64 Year
  Sex: Male
  Weight: 51 kg

DRUGS (15)
  1. CARBOPLATIN [Suspect]
     Active Substance: CARBOPLATIN
     Indication: Squamous cell carcinoma
     Dosage: 608 MG, SINGLE
     Route: 042
     Dates: start: 20220106, end: 20220106
  2. PACLITAXEL [Suspect]
     Active Substance: PACLITAXEL
     Indication: Squamous cell carcinoma
     Dosage: 283.2 MG, SINGLE
     Route: 042
     Dates: start: 20220106, end: 20220106
  3. KEYTRUDA [Suspect]
     Active Substance: PEMBROLIZUMAB
     Indication: Squamous cell carcinoma
     Dosage: 200 MG, SINGLE
     Route: 042
     Dates: start: 20220106, end: 20220106
  4. ZOLEDRONIC ACID [Concomitant]
     Active Substance: ZOLEDRONIC ACID
  5. ALPRAZOLAM [Concomitant]
     Active Substance: ALPRAZOLAM
  6. DOLIPRANE [Concomitant]
     Active Substance: ACETAMINOPHEN
  7. ARIXTRA [Concomitant]
     Active Substance: FONDAPARINUX SODIUM
  8. FOLIC ACID [Concomitant]
     Active Substance: FOLIC ACID
  9. ONDANSETRON [Concomitant]
     Active Substance: ONDANSETRON
  10. RANITIDINE HYDROCHLORIDE [Concomitant]
     Active Substance: RANITIDINE HYDROCHLORIDE
  11. DEXCHLORPHENIRAMINE MALEATE [Concomitant]
     Active Substance: DEXCHLORPHENIRAMINE MALEATE
  12. METHYLPREDNISOLONE [Concomitant]
     Active Substance: METHYLPREDNISOLONE
  13. METHYLPREDNISOLONE [Concomitant]
     Active Substance: METHYLPREDNISOLONE
  14. ERYTHROPOIETIN [Concomitant]
     Active Substance: ERYTHROPOIETIN
  15. PANTOPRAZOLE [Concomitant]
     Active Substance: PANTOPRAZOLE

REACTIONS (1)
  - Rash erythematous [Recovered/Resolved]

NARRATIVE: CASE EVENT DATE: 20220106
